FAERS Safety Report 25249537 (Version 2)
Quarter: 2025Q3

REPORT INFORMATION
  Report Type: Report from Study
  Country: SA (occurrence: SA)
  Receive Date: 20250429
  Receipt Date: 20250809
  Transmission Date: 20251021
  Serious: Yes (Other)
  Sender: ALEXION PHARMACEUTICALS
  Company Number: SA-AstraZeneca-CH-00854597A

PATIENT
  Age: 30 Year
  Sex: Female

DRUGS (1)
  1. FASENRA [Suspect]
     Active Substance: BENRALIZUMAB
     Indication: Asthma
     Dosage: 30 MILLIGRAM, Q4W
     Dates: start: 20220301

REACTIONS (4)
  - Drug exposure before pregnancy [Not Recovered/Not Resolved]
  - Abortion spontaneous [Unknown]
  - Benign hydatidiform mole [Unknown]
  - Maternal exposure during pregnancy [Unknown]
